FAERS Safety Report 5300923-5 (Version None)
Quarter: 2007Q2

REPORT INFORMATION
  Report Type: 
  Country: None (occurrence: None)
  Receive Date: 20070418
  Receipt Date: 20070406
  Transmission Date: 20071010
  Serious: Yes (Hospitalization)
  Sender: FDA-Public Use
  Company Number: KR-ROCHE-492406

PATIENT
  Age: 50 Year
  Sex: Male

DRUGS (1)
  1. PEGASYS [Suspect]
     Route: 065

REACTIONS (1)
  - PULMONARY TOXICITY [None]
